FAERS Safety Report 6970332-1 (Version None)
Quarter: 2010Q3

REPORT INFORMATION
  Report Type: 
  Country: None (occurrence: None)
  Receive Date: 20100823
  Receipt Date: 20100422
  Transmission Date: 20110219
  Serious: No
  Sender: FDA-Public Use
  Company Number: 010717

PATIENT
  Sex: Female

DRUGS (8)
  1. CIMZIA [Suspect]
     Indication: RHEUMATOID ARTHRITIS
     Dosage: 200 MG 1X/2 WEEKS SUBCUTANEOUS
     Route: 058
     Dates: start: 20100201, end: 20100401
  2. HYZAAR /01284801/ [Concomitant]
  3. ACIPHEX [Concomitant]
  4. HUMULIN N [Concomitant]
  5. HUMALOG [Concomitant]
  6. BYETTA [Concomitant]
  7. DIAZEPAM [Concomitant]
  8. NEURONTIN [Concomitant]

REACTIONS (1)
  - DRUG INEFFECTIVE [None]
